FAERS Safety Report 13670330 (Version 3)
Quarter: 2018Q3

REPORT INFORMATION
  Report Type: Report from Study
  Country: DE (occurrence: DE)
  Receive Date: 20170620
  Receipt Date: 20180802
  Transmission Date: 20181010
  Serious: Yes (Congenital Anomaly, Other)
  Sender: FDA-Public Use
  Company Number: PHHY2017DE090053

PATIENT
  Sex: Female
  Weight: 3.4 kg

DRUGS (7)
  1. COSENTYX [Suspect]
     Active Substance: SECUKINUMAB
     Indication: FOETAL EXPOSURE DURING PREGNANCY
     Dosage: MATERNAL DOSE 300 MG
     Route: 064
     Dates: start: 20160329
  2. IRON [Concomitant]
     Active Substance: IRON
     Indication: PRODUCT USED FOR UNKNOWN INDICATION
     Dosage: UNK
     Route: 065
  3. COSENTYX [Suspect]
     Active Substance: SECUKINUMAB
     Dosage: MATERNAL DOSE 300 MG
     Route: 064
     Dates: start: 20160414
  4. COSENTYX [Suspect]
     Active Substance: SECUKINUMAB
     Dosage: MATERNAL DOSE 300 MG
     Route: 064
     Dates: start: 20160428
  5. COSENTYX [Suspect]
     Active Substance: SECUKINUMAB
     Dosage: MATERNAL DOSE 300 MG
     Route: 064
     Dates: start: 20160405
  6. COSENTYX [Suspect]
     Active Substance: SECUKINUMAB
     Dosage: MATERNAL DOSE 300 MG
     Route: 064
     Dates: start: 20160523, end: 20160523
  7. COSENTYX [Suspect]
     Active Substance: SECUKINUMAB
     Dosage: MATERNAL DOSE 300 MG
     Route: 064
     Dates: start: 20160421

REACTIONS (4)
  - Foetal exposure during pregnancy [Unknown]
  - Left-to-right cardiac shunt [Unknown]
  - Premature baby [Unknown]
  - Ventricular septal defect [Unknown]

NARRATIVE: CASE EVENT DATE: 20170203
